FAERS Safety Report 10673979 (Version 5)
Quarter: 2018Q3

REPORT INFORMATION
  Report Type: Report from Study
  Country: US (occurrence: US)
  Receive Date: 20141224
  Receipt Date: 20180727
  Transmission Date: 20181010
  Serious: Yes (Hospitalization, Other)
  Sender: FDA-Public Use
  Company Number: US-SA-2014SA176413

PATIENT
  Age: 37 Year
  Sex: Female

DRUGS (2)
  1. TERIFLUNOMIDE [Suspect]
     Active Substance: TERIFLUNOMIDE
     Dosage: 14 MG,QD
     Route: 048
  2. TERIFLUNOMIDE [Suspect]
     Active Substance: TERIFLUNOMIDE
     Indication: MULTIPLE SCLEROSIS
     Dosage: 14 MG,QD
     Route: 048
     Dates: start: 20141201

REACTIONS (11)
  - Headache [Recovering/Resolving]
  - Malaise [Unknown]
  - Hypoaesthesia [Recovering/Resolving]
  - Brain neoplasm [Recovering/Resolving]
  - Sinusitis [Recovered/Resolved]
  - Paraesthesia [Unknown]
  - Cognitive disorder [Recovering/Resolving]
  - Tooth fracture [Not Recovered/Not Resolved]
  - Diarrhoea [Unknown]
  - Drug dose omission [Unknown]
  - Upper respiratory tract infection [Recovered/Resolved]

NARRATIVE: CASE EVENT DATE: 2015
